FAERS Safety Report 6229865-8 (Version None)
Quarter: 2009Q2

REPORT INFORMATION
  Report Type: 
  Country: None (occurrence: None)
  Receive Date: 20090615
  Receipt Date: 20090605
  Transmission Date: 20091009
  Serious: Yes (Other)
  Sender: FDA-Public Use
  Company Number: US-AMGEN-KDL342333

PATIENT
  Sex: Female
  Weight: 99 kg

DRUGS (5)
  1. PROCRIT [Suspect]
     Indication: DIALYSIS
     Route: 058
     Dates: start: 20040729
  2. MELPHALAN [Concomitant]
     Dates: start: 20080605
  3. COZAAR [Concomitant]
  4. PROTONIX [Concomitant]
  5. PREDNISONE [Concomitant]
     Dates: start: 20080605

REACTIONS (1)
  - THERAPEUTIC RESPONSE DECREASED [None]
